FAERS Safety Report 15216173 (Version 1)
Quarter: 2018Q3

REPORT INFORMATION
  Report Type: Spontaneous
  Country: US (occurrence: US)
  Receive Date: 20180730
  Receipt Date: 20180730
  Transmission Date: 20181010
  Serious: Yes (Life-Threatening, Hospitalization)
  Sender: FDA-Public Use
  Company Number: PHHY2018US052365

PATIENT
  Age: 24 Year
  Sex: Male

DRUGS (2)
  1. PREDNISONE. [Suspect]
     Active Substance: PREDNISONE
     Indication: AUTOIMMUNE HEPATITIS
     Dosage: UNK
     Route: 065
  2. AZATHIOPRINE. [Suspect]
     Active Substance: AZATHIOPRINE
     Indication: AUTOIMMUNE HEPATITIS
     Dosage: UNK
     Route: 065

REACTIONS (5)
  - Splenic rupture [Unknown]
  - Back pain [Unknown]
  - Hyperhidrosis [Unknown]
  - Ecchymosis [Unknown]
  - Hepatosplenic T-cell lymphoma [Unknown]
